FAERS Safety Report 4323435-4 (Version None)
Quarter: 2004Q1

REPORT INFORMATION
  Report Type: 
  Country: None (occurrence: None)
  Receive Date: 20040325
  Receipt Date: 20030130
  Transmission Date: 20041129
  Serious: Yes (Disabling)
  Sender: FDA-Public Use
  Company Number: WAES 0302USA00065

PATIENT
  Age: 48 Year
  Sex: Female
  Weight: 107 kg

DRUGS (11)
  1. VICODIN [Concomitant]
  2. ASPIRIN [Concomitant]
     Indication: ATHEROSCLEROSIS
  3. PLAVIX [Concomitant]
     Indication: ATHEROSCLEROSIS
     Dates: start: 20000101
  4. PREMARIN [Concomitant]
     Indication: HORMONE REPLACEMENT THERAPY
  5. INSULIN [Concomitant]
     Indication: DIABETES MELLITUS
  6. SYNTHROID [Concomitant]
     Indication: THYROID DISORDER
  7. GLUCOPHAGE [Concomitant]
     Indication: DIABETES MELLITUS
  8. METOPROLOL TARTRATE [Concomitant]
     Indication: HYPERTENSION
  9. ACCUPRIL [Concomitant]
     Indication: HYPERTENSION
  10. VIOXX [Suspect]
     Indication: PAIN
     Route: 048
     Dates: start: 20010601, end: 20010916
  11. VIOXX [Suspect]
     Route: 048
     Dates: start: 20010601, end: 20010916

REACTIONS (7)
  - BLOOD TRIGLYCERIDES INCREASED [None]
  - COAGULOPATHY [None]
  - CORONARY ARTERY THROMBOSIS [None]
  - FLUID RETENTION [None]
  - INJURY [None]
  - MYOCARDIAL INFARCTION [None]
  - STRESS SYMPTOMS [None]
